FAERS Safety Report 24944689 (Version 2)
Quarter: 2025Q1

REPORT INFORMATION
  Report Type: Report from Study
  Country: CO (occurrence: CO)
  Receive Date: 20250208
  Receipt Date: 20250215
  Transmission Date: 20250409
  Serious: Yes (Other)
  Sender: ABBVIE
  Company Number: CO-ABBVIE-6120066

PATIENT
  Sex: Male

DRUGS (2)
  1. RINVOQ [Suspect]
     Active Substance: UPADACITINIB
     Indication: Colitis ulcerative
     Dosage: 15 MG
     Route: 048
     Dates: start: 20241109, end: 20250130
  2. CEPHALEXIN [Concomitant]
     Active Substance: CEPHALEXIN
     Indication: Prophylaxis
     Route: 048
     Dates: start: 20250130

REACTIONS (1)
  - Eyelid ptosis [Recovering/Resolving]
